FAERS Safety Report 5325929-1 (Version None)
Quarter: 2007Q2

REPORT INFORMATION
  Report Type: 
  Country: None (occurrence: None)
  Receive Date: 20070516
  Receipt Date: 20070507
  Transmission Date: 20071010
  Serious: Yes (Other)
  Sender: FDA-Public Use
  Company Number: PHBS2007BE07849

PATIENT
  Age: 54 Year
  Sex: Female

DRUGS (1)
  1. LESCOL XL [Suspect]
     Route: 048

REACTIONS (1)
  - BLOOD CREATININE INCREASED [None]
